FAERS Safety Report 9254091 (Version 3)
Quarter: 2013Q2

REPORT INFORMATION
  Report Type: Spontaneous
  Country: US (occurrence: US)
  Receive Date: 20130425
  Receipt Date: 20130625
  Transmission Date: 20140414
  Serious: Yes (Life-Threatening, Disabling, Other)
  Sender: FDA-Public Use
  Company Number: US-009507513-1304USA013760

PATIENT
  Sex: Male
  Weight: 87.53 kg

DRUGS (12)
  1. JANUVIA [Suspect]
     Indication: DIABETES MELLITUS
     Dosage: UNK
     Route: 048
     Dates: start: 2010, end: 201302
  2. ACTOS [Concomitant]
     Dosage: UNK
     Dates: start: 201104
  3. METFORMIN [Concomitant]
     Dosage: UNK
     Dates: start: 201104
  4. GLIPIZIDE [Concomitant]
     Dosage: UNK
     Dates: start: 201104
  5. VICTOZA [Concomitant]
     Dosage: UNK
  6. ZOCOR [Concomitant]
  7. AMLODIPINE [Concomitant]
  8. FLEXERIL [Concomitant]
  9. BENAZEPRIL HYDROCHLORIDE [Concomitant]
  10. ATENOLOL [Concomitant]
  11. NOVOLOG [Concomitant]
  12. LEVIUM [Concomitant]

REACTIONS (1)
  - Pancreatic carcinoma [Not Recovered/Not Resolved]
